FAERS Safety Report 6152340-6 (Version None)
Quarter: 2009Q2

REPORT INFORMATION
  Report Type: 
  Country: None (occurrence: None)
  Receive Date: 20090409
  Receipt Date: 20090326
  Transmission Date: 20091009
  Serious: Yes (Hospitalization)
  Sender: FDA-Public Use
  Company Number: 8044297

PATIENT
  Sex: Male
  Weight: 102 kg

DRUGS (4)
  1. KEPPRA [Suspect]
     Indication: CONVULSION
     Dosage: 1500 MG 2/D PO
     Route: 048
     Dates: start: 20020101, end: 20090101
  2. TEGRETOL [Concomitant]
  3. ALBUTEROL [Concomitant]
  4. LISINOPRIL [Concomitant]

REACTIONS (1)
  - CONVULSION [None]
